FAERS Safety Report 21610255 (Version 1)
Quarter: 2022Q4

REPORT INFORMATION
  Report Type: Report from Study
  Country: US (occurrence: US)
  Receive Date: 20221117
  Receipt Date: 20221117
  Transmission Date: 20230112
  Serious: No
  Sender: FDA-Public Use
  Company Number: US-ABBVIE-22K-163-4310787-00

PATIENT
  Sex: Female

DRUGS (2)
  1. VENCLEXTA [Suspect]
     Active Substance: VENETOCLAX
     Indication: Chronic lymphocytic leukaemia
     Route: 048
     Dates: start: 202109
  2. VENCLEXTA [Suspect]
     Active Substance: VENETOCLAX
     Indication: Chronic lymphocytic leukaemia
     Route: 048

REACTIONS (9)
  - Diarrhoea [Unknown]
  - Sciatica [Unknown]
  - Heart valve incompetence [Unknown]
  - Dizziness [Unknown]
  - Dyspnoea [Unknown]
  - Pain [Unknown]
  - Fatigue [Unknown]
  - Hypoaesthesia [Unknown]
  - Constipation [Unknown]
